FAERS Safety Report 5751519-2 (Version None)
Quarter: 2008Q2

REPORT INFORMATION
  Report Type: 
  Country: None (occurrence: None)
  Receive Date: 20080528
  Receipt Date: 20080515
  Transmission Date: 20081010
  Serious: No
  Sender: FDA-Public Use
  Company Number: PHEH2006US15160

PATIENT
  Sex: Female
  Weight: 78.004 kg

DRUGS (6)
  1. CGS 20267 T30748+TAB [Suspect]
     Indication: BREAST CANCER
     Route: 048
     Dates: start: 20020101
  2. CGS 20267 T30748+TAB [Suspect]
     Dosage: 2.5 MG, QD
     Route: 048
     Dates: start: 20060125
  3. ZOLEDRONIC ACID [Suspect]
     Dosage: 4MG, EVERY 6 MONTHS
     Route: 042
     Dates: start: 20020101
  4. ZOLEDRONIC ACID [Suspect]
     Dosage: 4MG, EVERY 6 MONTHS
     Route: 042
     Dates: start: 20060125
  5. CALCIUM WITH VITAMIN D [Concomitant]
  6. TOPROL-XL [Concomitant]

REACTIONS (2)
  - PAIN IN JAW [None]
  - TEMPOROMANDIBULAR JOINT SYNDROME [None]
